FAERS Safety Report 16262805 (Version 1)
Quarter: 2019Q2

REPORT INFORMATION
  Report Type: Spontaneous
  Country: US (occurrence: US)
  Receive Date: 20190502
  Receipt Date: 20190502
  Transmission Date: 20190711
  Serious: Yes (Hospitalization, Other)
  Sender: FDA-Public Use
  Company Number: US-ACCORD-125006

PATIENT
  Sex: Female

DRUGS (6)
  1. BRILINTA [Concomitant]
     Active Substance: TICAGRELOR
     Dosage: STRENGTH: 90 MG
  2. DOCUSATE [Concomitant]
     Active Substance: DOCUSATE
     Dosage: STRENGTH: 100 MG
  3. CYANOCOBALAMIN. [Concomitant]
     Active Substance: CYANOCOBALAMIN
     Dosage: STRENGTH: 1000 MG
  4. CLONAZEPAM ACCORD [Suspect]
     Active Substance: CLONAZEPAM
     Indication: NERVOUS SYSTEM DISORDER
     Dosage: ALSO RECEIVED 1 MG AND 0.5 MG
     Route: 048
  5. LISINOPRIL. [Concomitant]
     Active Substance: LISINOPRIL
     Dosage: STRENGTH: 20 MG
  6. ATORVASTATIN [Concomitant]
     Active Substance: ATORVASTATIN
     Dosage: STRENGTH 40 MG

REACTIONS (6)
  - Feeding disorder [Not Recovered/Not Resolved]
  - Rash generalised [Not Recovered/Not Resolved]
  - Confusional state [Not Recovered/Not Resolved]
  - Urinary tract infection [Not Recovered/Not Resolved]
  - Gait inability [Not Recovered/Not Resolved]
  - Dysarthria [Not Recovered/Not Resolved]
